FAERS Safety Report 20674779 (Version 1)
Quarter: 2022Q2

REPORT INFORMATION
  Report Type: Spontaneous
  Country: US (occurrence: US)
  Receive Date: 20220405
  Receipt Date: 20220405
  Transmission Date: 20220720
  Serious: No
  Sender: FDA-Public Use
  Company Number: US-PFIZER INC-202200511519

PATIENT
  Age: 51 Year
  Sex: Male

DRUGS (3)
  1. PAXLOVID [Suspect]
     Active Substance: NIRMATRELVIR\RITONAVIR
     Indication: COVID-19 treatment
     Dosage: UNK
     Dates: start: 20220331, end: 20220401
  2. DUEXIS [Concomitant]
     Active Substance: FAMOTIDINE\IBUPROFEN
     Dosage: UNK
     Dates: start: 20220330, end: 20220331
  3. DIAZEPAM [Concomitant]
     Active Substance: DIAZEPAM
     Dosage: UNK
     Dates: start: 20220330, end: 20220331

REACTIONS (2)
  - Dysgeusia [Recovering/Resolving]
  - Incorrect product administration duration [Unknown]

NARRATIVE: CASE EVENT DATE: 20220331
